FAERS Safety Report 5022538-9 (Version None)
Quarter: 2006Q2

REPORT INFORMATION
  Report Type: 
  Country: None (occurrence: None)
  Receive Date: 20060605
  Receipt Date: 20060518
  Transmission Date: 20061013
  Serious: Yes (Hospitalization, Other)
  Sender: FDA-Public Use
  Company Number: DE-2006-012150

PATIENT
  Age: 59 Year

DRUGS (2)
  1. FLUDARABINE PHOSPHATE [Suspect]
  2. CYCLOPHOSPHAMIDE [Suspect]

REACTIONS (9)
  - CATHETER RELATED INFECTION [None]
  - DISEASE RECURRENCE [None]
  - FALL [None]
  - GRAFT VERSUS HOST DISEASE [None]
  - PROTEUS INFECTION [None]
  - RETROPERITONEAL HAEMATOMA [None]
  - SHOCK [None]
  - SYNCOPE VASOVAGAL [None]
  - VENOUS THROMBOSIS LIMB [None]
